FAERS Safety Report 7912627-0 (Version None)
Quarter: 2011Q4

REPORT INFORMATION
  Report Type: 
  Country: None (occurrence: None)
  Receive Date: 20111114
  Receipt Date: 20111107
  Transmission Date: 20120403
  Serious: Yes (Other)
  Sender: FDA-Public Use
  Company Number: DE-PFIZER INC-2011271823

PATIENT
  Age: 56 Year
  Sex: Male

DRUGS (1)
  1. LYRICA [Suspect]
     Indication: ANXIETY
     Dosage: 150 MG, 50MG IN THE MORNING AND 100 MG IN THE EVENING
     Dates: start: 20111101

REACTIONS (1)
  - BLOOD GLUCOSE INCREASED [None]
